FAERS Safety Report 15266519 (Version 5)
Quarter: 2018Q4

REPORT INFORMATION
  Report Type: Report from Study
  Country: CA (occurrence: CA)
  Receive Date: 20180810
  Receipt Date: 20181204
  Transmission Date: 20190204
  Serious: Yes (Hospitalization, Other)
  Sender: FDA-Public Use
  Company Number: CA-BRISTOL-MYERS SQUIBB COMPANY-BMS-2018-071325

PATIENT
  Age: 78 Year
  Sex: Male

DRUGS (1)
  1. ABATACEPT [Suspect]
     Active Substance: ABATACEPT
     Indication: RHEUMATOID ARTHRITIS
     Dosage: 500 MG, Q4WK
     Route: 042
     Dates: start: 20181027

REACTIONS (9)
  - Clavicle fracture [Unknown]
  - Spinal fracture [Unknown]
  - Rib fracture [Unknown]
  - Vomiting [Recovering/Resolving]
  - Fall [Recovering/Resolving]
  - Neck pain [Unknown]
  - Diarrhoea [Recovering/Resolving]
  - Spinal disorder [Unknown]
  - Nausea [Recovering/Resolving]

NARRATIVE: CASE EVENT DATE: 20181106
